FAERS Safety Report 10446153 (Version 4)
Quarter: 2014Q4

REPORT INFORMATION
  Report Type: Spontaneous
  Country: GB (occurrence: GB)
  Receive Date: 20140910
  Receipt Date: 20141112
  Transmission Date: 20150528
  Serious: Yes (Hospitalization, Other)
  Sender: FDA-Public Use
  Company Number: GB-ABBVIE-13P-167-1102632-00

PATIENT
  Age: 65 Year
  Sex: Female

DRUGS (11)
  1. PARACETAMOL [Concomitant]
     Active Substance: ACETAMINOPHEN
     Indication: PRODUCT USED FOR UNKNOWN INDICATION
     Dosage: 1 G, FOUR TIMES A DAY, 14/7
     Route: 048
  2. LANSOPRAZOLE. [Concomitant]
     Active Substance: LANSOPRAZOLE
     Indication: DYSPEPSIA
     Dosage: IN THE MORNING, 28/7
     Route: 048
  3. VANCOMYCIN [Concomitant]
     Active Substance: VANCOMYCIN
     Indication: CELLULITIS
  4. HUMIRA [Suspect]
     Active Substance: ADALIMUMAB
     Dosage: FORTNIGHTLY
     Route: 058
     Dates: start: 201311
  5. VANCOMYCIN [Concomitant]
     Active Substance: VANCOMYCIN
     Indication: SEPSIS
     Route: 042
  6. HUMIRA [Suspect]
     Active Substance: ADALIMUMAB
     Indication: RHEUMATOID ARTHRITIS
     Dosage: FORTNIGHTLY
     Route: 058
     Dates: start: 201211, end: 201306
  7. ANTIBIOTICS [Suspect]
     Active Substance: UNSPECIFIED INGREDIENT
     Indication: PRODUCT USED FOR UNKNOWN INDICATION
     Route: 065
  8. AMLODIPINE [Concomitant]
     Active Substance: AMLODIPINE BESYLATE
     Indication: HYPERTENSION
     Dosage: IN THE MORNING, 28/7
     Route: 048
  9. CO-DYDRAMOL [Concomitant]
     Active Substance: ACETAMINOPHEN\DIHYDROCODEINE
     Indication: PAIN
     Dosage: 10/500MG
     Route: 048
  10. ERYTHROMYCIN. [Concomitant]
     Active Substance: ERYTHROMYCIN
     Indication: CELLULITIS
     Dosage: 7 DAYS
     Route: 048
  11. LEFLUNOMIDE. [Concomitant]
     Active Substance: LEFLUNOMIDE
     Indication: RHEUMATOID ARTHRITIS
     Dosage: IN THE MORNING, 28/7
     Route: 048

REACTIONS (21)
  - Bronchitis [Unknown]
  - Pruritus [Unknown]
  - Arthralgia [Unknown]
  - Tremor [Not Recovered/Not Resolved]
  - Insomnia [Not Recovered/Not Resolved]
  - Acute kidney injury [Recovered/Resolved]
  - Cellulitis [Recovered/Resolved]
  - Joint swelling [Unknown]
  - Diarrhoea [Recovered/Resolved]
  - Peripheral swelling [Not Recovered/Not Resolved]
  - Hyperhidrosis [Unknown]
  - Night sweats [Not Recovered/Not Resolved]
  - Joint swelling [Not Recovered/Not Resolved]
  - Cellulitis [Recovered/Resolved]
  - Dehydration [Unknown]
  - Musculoskeletal stiffness [Not Recovered/Not Resolved]
  - Haemorrhoids [Recovering/Resolving]
  - Arthralgia [Unknown]
  - Malaise [Not Recovered/Not Resolved]
  - Rheumatoid arthritis [Unknown]
  - Sepsis [Unknown]

NARRATIVE: CASE EVENT DATE: 2013
